FAERS Safety Report 6808926-6 (Version None)
Quarter: 2010Q2

REPORT INFORMATION
  Report Type: 
  Country: None (occurrence: None)
  Receive Date: 20100630
  Receipt Date: 20091006
  Transmission Date: 20101027
  Serious: No
  Sender: FDA-Public Use
  Company Number: US-PFIZER INC-2009281694

PATIENT
  Sex: Female
  Weight: 72.562 kg

DRUGS (2)
  1. ALPRAZOLAM [Suspect]
     Indication: ANXIETY
     Dosage: 4MG/DAY
     Dates: start: 20090101
  2. ALPRAZOLAM [Suspect]
     Indication: PANIC ATTACK

REACTIONS (1)
  - DRUG INEFFECTIVE [None]
